FAERS Safety Report 7083838-4 (Version None)
Quarter: 2010Q4

REPORT INFORMATION
  Report Type: 
  Country: None (occurrence: None)
  Receive Date: 20101104
  Receipt Date: 20101027
  Transmission Date: 20110411
  Serious: Yes (Hospitalization)
  Sender: FDA-Public Use
  Company Number: MY-BRISTOL-MYERS SQUIBB COMPANY-15295512

PATIENT
  Age: 50 Year
  Sex: Female
  Weight: 47 kg

DRUGS (9)
  1. CETUXIMAB [Suspect]
     Indication: COLORECTAL CANCER METASTATIC
     Dosage: INF:1;STRENGTH:5MG/ML.REC.INF ON 07SEP2010. INTERRUPTED ON 21SEP10 RESTART 19OCT10
     Route: 042
     Dates: start: 20100907
  2. OXALIPLATIN [Suspect]
     Indication: COLORECTAL CANCER METASTATIC
     Dosage: 1ST AND REC.INF ON 07-SEP-2010. INTERRUPTED ON 21SEP10
     Route: 042
     Dates: start: 20100907, end: 20100921
  3. FLUOROURACIL [Suspect]
     Indication: COLORECTAL CANCER METASTATIC
     Dosage: 400MG/M2 BOLUS,2400MG/M2 CONTINUOUS INF;46HRS INF 1ST,REC.INF ON 07SEP10 INTERRUPTED ON 21SEP10
     Route: 042
     Dates: start: 20100907, end: 20100921
  4. FOLINIC ACID [Suspect]
     Indication: COLORECTAL CANCER METASTATIC
     Dosage: 1ST AND REC.INF ON 07-SEP-2010. INTERRUPTED ON 21SEP10
     Route: 042
     Dates: start: 20100907, end: 20100921
  5. DEXAMETHASONE [Concomitant]
     Indication: PROPHYLAXIS
     Route: 048
     Dates: start: 20100907, end: 20100912
  6. HYOSCINE HBR HYT [Concomitant]
     Indication: PROPHYLAXIS
     Route: 048
     Dates: start: 20100907, end: 20100912
  7. POTASSIUM CHLORIDE [Concomitant]
     Route: 042
     Dates: start: 20100917, end: 20100922
  8. ESOMEPRAZOLE [Concomitant]
     Route: 042
     Dates: start: 20100915, end: 20101001
  9. ULTRACET [Concomitant]
     Dosage: ULTRACET 325
     Route: 048
     Dates: start: 20100914

REACTIONS (5)
  - DEHYDRATION [None]
  - HYPOKALAEMIA [None]
  - HYPONATRAEMIA [None]
  - INTESTINAL OBSTRUCTION [None]
  - VOMITING [None]
